FAERS Safety Report 16353126 (Version 2)
Quarter: 2021Q1

REPORT INFORMATION
  Report Type: Spontaneous
  Country: US (occurrence: US)
  Receive Date: 20190524
  Receipt Date: 20210126
  Transmission Date: 20210419
  Serious: No
  Sender: FDA-Public Use
  Company Number: US-PFIZER INC-2019221423

PATIENT
  Age: 86 Year
  Sex: Female

DRUGS (1)
  1. EUCRISA [Suspect]
     Active Substance: CRISABOROLE
     Indication: DERMATITIS ATOPIC
     Dosage: UNK, TWICE A DAY (TO AFFECTED AREAS ON BODY PRN (AS NEEDED))

REACTIONS (3)
  - Eye pruritus [Unknown]
  - Condition aggravated [Unknown]
  - Pruritus [Unknown]
